FAERS Safety Report 7628953-9 (Version None)
Quarter: 2011Q3

REPORT INFORMATION
  Report Type: 
  Country: None (occurrence: None)
  Receive Date: 20110722
  Receipt Date: 20110714
  Transmission Date: 20111222
  Serious: Yes (Hospitalization, Other)
  Sender: FDA-Public Use
  Company Number: US-BAYER-201031834NA

PATIENT
  Age: 38 Year
  Sex: Female
  Weight: 63 kg

DRUGS (7)
  1. NASONEX [Concomitant]
     Dosage: 1 SPRAY PER NOSTRIL DAY
  2. VITAMIN E [Concomitant]
     Dosage: 400 UNITS
  3. YAZ [Suspect]
     Dosage: UNK
     Route: 048
     Dates: start: 20070912, end: 20081008
  4. ZYRTEC [Concomitant]
  5. VITAMIN TAB [Concomitant]
     Dosage: DAILY
  6. VITAMIN B-12 [Concomitant]
  7. VITAMIN B6 [Concomitant]
     Dosage: 25 MG, UNK

REACTIONS (4)
  - ANXIETY [None]
  - DEPRESSION [None]
  - DEEP VEIN THROMBOSIS [None]
  - PULMONARY EMBOLISM [None]
